FAERS Safety Report 7749292-1 (Version None)
Quarter: 2011Q3

REPORT INFORMATION
  Report Type: 
  Country: None (occurrence: None)
  Receive Date: 20110914
  Receipt Date: 20110906
  Transmission Date: 20111222
  Serious: Yes (Other)
  Sender: FDA-Public Use
  Company Number: FR-ASTELLAS-2011EU006127

PATIENT
  Age: 26 Year
  Sex: Male

DRUGS (1)
  1. PROTOPIC [Suspect]
     Indication: VITILIGO
     Dosage: 1 DF, UID/QD
     Route: 048
     Dates: start: 20090101, end: 20110122

REACTIONS (2)
  - PARAESTHESIA [None]
  - OFF LABEL USE [None]
